FAERS Safety Report 9485684 (Version 1)
Quarter: 2013Q3

REPORT INFORMATION
  Report Type: Spontaneous
  Country: JP (occurrence: None)
  Receive Date: 20130822
  Receipt Date: 20130822
  Transmission Date: 20140515
  Serious: Yes (Hospitalization)
  Sender: FDA-Public Use
  Company Number: SP06808

PATIENT
  Age: 63 Year
  Sex: Female

DRUGS (4)
  1. MOVIPREP (SOLUTION) [Suspect]
     Indication: BOWEL PREPARATION
     Route: 048
     Dates: start: 20130604, end: 20130604
  2. PURSENNID [Concomitant]
  3. AMARYL [Concomitant]
  4. ASPARA K [Concomitant]

REACTIONS (5)
  - Thirst [None]
  - Lip swelling [None]
  - Dysgeusia [None]
  - Dehydration [None]
  - Hypokalaemia [None]
